FAERS Safety Report 13397237 (Version 1)
Quarter: 2017Q2

REPORT INFORMATION
  Report Type: Report from Study
  Country: None (occurrence: US)
  Receive Date: 20170403
  Receipt Date: 20170403
  Transmission Date: 20170830
  Serious: Yes (Hospitalization)
  Sender: FDA-Public Use
  Company Number: US-ABBVIE-17K-163-1924863-00

PATIENT
  Age: 39 Year
  Sex: Female

DRUGS (2)
  1. HUMIRA [Suspect]
     Active Substance: ADALIMUMAB
     Indication: CROHN^S DISEASE
     Dosage: DAY 1
     Route: 058
     Dates: start: 20170303, end: 20170303
  2. HUMIRA [Suspect]
     Active Substance: ADALIMUMAB
     Dosage: DAY 15
     Route: 058
     Dates: start: 20170317, end: 20170317

REACTIONS (14)
  - Intestinal stenosis [Unknown]
  - Anxiety [Unknown]
  - Depressed mood [Unknown]
  - Weight decreased [Unknown]
  - Abscess intestinal [Unknown]
  - Nausea [Unknown]
  - Pyrexia [Unknown]
  - Decreased appetite [Unknown]
  - Enteritis [Not Recovered/Not Resolved]
  - Fear [Unknown]
  - Insomnia [Unknown]
  - Intestinal obstruction [Not Recovered/Not Resolved]
  - Malaise [Unknown]
  - Diarrhoea [Unknown]

NARRATIVE: CASE EVENT DATE: 201703
